FAERS Safety Report 7582611-8 (Version None)
Quarter: 2011Q2

REPORT INFORMATION
  Report Type: 
  Country: None (occurrence: None)
  Receive Date: 20110630
  Receipt Date: 20110621
  Transmission Date: 20111010
  Serious: Yes (Hospitalization)
  Sender: FDA-Public Use
  Company Number: JP-ELI_LILLY_AND_COMPANY-JP201106005251

PATIENT
  Sex: Female

DRUGS (3)
  1. DIOVAN [Concomitant]
     Dosage: UNK
  2. FORTEO [Suspect]
     Indication: OSTEOPOROSIS
     Route: 058
  3. AMLODIPINE [Concomitant]
     Dosage: UNK

REACTIONS (1)
  - ASTHMA [None]
